FAERS Safety Report 6764974-6 (Version None)
Quarter: 2010Q2

REPORT INFORMATION
  Report Type: 
  Country: None (occurrence: None)
  Receive Date: 20100610
  Receipt Date: 20100528
  Transmission Date: 20101027
  Serious: Yes (Other)
  Sender: FDA-Public Use
  Company Number: PHHY2010US35478

PATIENT
  Sex: Female

DRUGS (6)
  1. RECLAST [Suspect]
     Dosage: UNK,UNK
  2. THYROID TAB [Concomitant]
     Dosage: UNK,UNK
  3. VITAMINS [Concomitant]
     Dosage: UNK,UNK
  4. VAGIFEM [Concomitant]
     Dosage: UNK,UNK
  5. PRILOSEC [Concomitant]
     Dosage: UNK,UNK
  6. HERBS [Concomitant]
     Dosage: UNK,UNK

REACTIONS (5)
  - DENTAL CARIES [None]
  - ENDODONTIC PROCEDURE [None]
  - GINGIVAL SWELLING [None]
  - LOOSE TOOTH [None]
  - MOUTH ULCERATION [None]
